FAERS Safety Report 6202319-0 (Version None)
Quarter: 2009Q2

REPORT INFORMATION
  Report Type: 
  Country: None (occurrence: None)
  Receive Date: 20090526
  Receipt Date: 20090518
  Transmission Date: 20091009
  Serious: Yes (Hospitalization)
  Sender: FDA-Public Use
  Company Number: FR-AVENTIS-200911907FR

PATIENT
  Age: 23 Year
  Sex: Female

DRUGS (5)
  1. TOPLEXIL                           /01513001/ [Suspect]
     Indication: BRONCHITIS
     Route: 048
     Dates: start: 20090331, end: 20090404
  2. KETEK [Suspect]
     Indication: BRONCHITIS
     Route: 048
     Dates: start: 20090331, end: 20090404
  3. DOLIPRANE [Suspect]
     Indication: BRONCHITIS
     Route: 048
     Dates: start: 20090331, end: 20090404
  4. TRIPHASIL-21 [Concomitant]
     Indication: ORAL CONTRACEPTION
     Route: 048
  5. RHINOFLUIMUCIL                     /00851901/ [Concomitant]
     Indication: RHINITIS
     Dates: start: 20090331, end: 20090404

REACTIONS (2)
  - LEUKOPENIA [None]
  - NEUTROPENIA [None]
